FAERS Safety Report 11921499 (Version 6)
Quarter: 2017Q3

REPORT INFORMATION
  Report Type: Report from Study
  Country: JP (occurrence: JP)
  Receive Date: 20160115
  Receipt Date: 20170707
  Transmission Date: 20171127
  Serious: Yes (Death, Life-Threatening, Other)
  Sender: FDA-Public Use
  Company Number: PHJP2016JP000814

PATIENT
  Age: 81 Year
  Sex: Male
  Weight: 66 kg

DRUGS (7)
  1. DECADRON [Concomitant]
     Active Substance: DEXAMETHASONE
     Dosage: 1 MG, QD
     Route: 048
     Dates: start: 20160101
  2. FARYDAK [Suspect]
     Active Substance: PANOBINOSTAT
     Indication: PLASMA CELL MYELOMA
     Dosage: 10 MG, QD
     Route: 048
     Dates: start: 20151221, end: 20151228
  3. NIFEDIPINE. [Concomitant]
     Active Substance: NIFEDIPINE
     Indication: PRODUCT USED FOR UNKNOWN INDICATION
     Dosage: UNK
     Route: 065
  4. DECADRON [Concomitant]
     Active Substance: DEXAMETHASONE
     Dosage: 1 MG, QD
     Route: 048
     Dates: start: 20151230
  5. VELCADE [Concomitant]
     Active Substance: BORTEZOMIB
     Indication: PLASMA CELL MYELOMA
     Dosage: 1.0 MG/M2, QW
     Route: 042
     Dates: start: 20151221, end: 20151228
  6. DECADRON [Concomitant]
     Active Substance: DEXAMETHASONE
     Indication: PLASMA CELL MYELOMA
     Dosage: 1 MG, QD
     Route: 048
     Dates: start: 20151223
  7. DECADRON [Concomitant]
     Active Substance: DEXAMETHASONE
     Dosage: 1 MG, QD
     Route: 048
     Dates: start: 20151228

REACTIONS (9)
  - Renal impairment [Unknown]
  - Parotid gland enlargement [Unknown]
  - Pyrexia [Fatal]
  - Cardiac failure [Not Recovered/Not Resolved]
  - Pneumonia [Fatal]
  - Depressed level of consciousness [Not Recovered/Not Resolved]
  - Dyspnoea [Fatal]
  - Cytopenia [Unknown]
  - Rash [Unknown]

NARRATIVE: CASE EVENT DATE: 20151228
